FAERS Safety Report 17056146 (Version 1)
Quarter: 2019Q4

REPORT INFORMATION
  Report Type: Other
  Country: IT (occurrence: IT)
  Receive Date: 20191121
  Receipt Date: 20191121
  Transmission Date: 20200122
  Serious: Yes (Other)
  Sender: FDA-Public Use
  Company Number: IT-APOTEX-2019AP025062

PATIENT
  Age: 26 Year
  Sex: Female

DRUGS (2)
  1. PAROXETINE HYDROCHLORIDE. [Suspect]
     Active Substance: PAROXETINE HYDROCHLORIDE
     Indication: DRUG ABUSE
     Dosage: 280 MG, SINGLE (IN TOTAL), DAILY
     Route: 048
     Dates: start: 20190930, end: 20190930
  2. SIBILLA [Suspect]
     Active Substance: DIENOGEST\ETHINYL ESTRADIOL
     Indication: DRUG ABUSE
     Dosage: 11 DF, SINGLE (IN TOTAL)
     Route: 048
     Dates: start: 20190930, end: 20190930

REACTIONS (2)
  - Drug abuse [Recovering/Resolving]
  - Electrocardiogram QT prolonged [Recovering/Resolving]

NARRATIVE: CASE EVENT DATE: 20190930
